FAERS Safety Report 4498708-5 (Version None)
Quarter: 2004Q4

REPORT INFORMATION
  Report Type: 
  Country: None (occurrence: None)
  Receive Date: 20041108
  Receipt Date: 20041020
  Transmission Date: 20050328
  Serious: Yes (Hospitalization)
  Sender: FDA-Public Use
  Company Number: A03200403524

PATIENT
  Age: 54 Year
  Sex: Male
  Weight: 104.3273 kg

DRUGS (4)
  1. PLAVIX [Suspect]
     Indication: CORONARY ARTERY OCCLUSION
     Dosage: 75 MG QD - ORAL
     Route: 048
     Dates: start: 20030301
  2. ATORVASTATIN CALCIUM [Concomitant]
  3. PIOGLITAZONE HCL [Concomitant]
  4. ACETYLSALICYLIC ACID [Concomitant]

REACTIONS (9)
  - BLINDNESS TRANSIENT [None]
  - BLINDNESS UNILATERAL [None]
  - COLONIC HAEMORRHAGE [None]
  - COLONIC POLYP [None]
  - ISCHAEMIA [None]
  - OPTIC NERVE DISORDER [None]
  - POST PROCEDURAL HAEMORRHAGE [None]
  - SUTURE RELATED COMPLICATION [None]
  - VISUAL ACUITY REDUCED [None]
